FAERS Safety Report 4984703-6 (Version None)
Quarter: 2006Q2

REPORT INFORMATION
  Report Type: 
  Country: None (occurrence: None)
  Receive Date: 20060427
  Receipt Date: 20050218
  Transmission Date: 20061013
  Serious: Yes (Other)
  Sender: FDA-Public Use
  Company Number: US-MERCK-0502USA02989

PATIENT
  Age: 43 Year
  Sex: Male
  Weight: 84 kg

DRUGS (3)
  1. VIOXX [Suspect]
     Indication: ARTHRITIS
     Route: 048
     Dates: start: 19990701, end: 20030101
  2. NEURONTIN [Concomitant]
     Route: 065
  3. RELAFEN [Concomitant]
     Route: 065

REACTIONS (10)
  - CONVULSION [None]
  - DEEP VEIN THROMBOSIS [None]
  - EXOSTOSIS [None]
  - INJURY [None]
  - NEURALGIA [None]
  - PAIN IN EXTREMITY [None]
  - SHOULDER PAIN [None]
  - THROMBOSIS [None]
  - TRANSIENT ISCHAEMIC ATTACK [None]
  - VENOUS STASIS [None]
